FAERS Safety Report 9140119 (Version 3)
Quarter: 2013Q2

REPORT INFORMATION
  Report Type: Spontaneous
  Country: ES (occurrence: ES)
  Receive Date: 20130305
  Receipt Date: 20130415
  Transmission Date: 20140414
  Serious: Yes (Hospitalization, Other)
  Sender: FDA-Public Use
  Company Number: ES-ABBOTT-13P-144-1055704-00

PATIENT
  Age: 40 Year
  Sex: Male

DRUGS (3)
  1. HUMIRA [Suspect]
     Indication: CROHN^S DISEASE
     Route: 058
     Dates: start: 20110619, end: 20130119
  2. HUMIRA [Suspect]
     Indication: SPINAL OSTEOARTHRITIS
  3. CONDROSAN [Concomitant]
     Indication: PRODUCT USED FOR UNKNOWN INDICATION

REACTIONS (7)
  - Cerebellar infarction [Recovered/Resolved]
  - Transient ischaemic attack [Recovered/Resolved]
  - Unevaluable event [Unknown]
  - Staring [Unknown]
  - Dysarthria [Unknown]
  - VIIth nerve paralysis [Unknown]
  - Headache [Unknown]
